FAERS Safety Report 10233165 (Version 1)
Quarter: 2014Q2

REPORT INFORMATION
  Report Type: Spontaneous
  Country: BR (occurrence: BR)
  Receive Date: 20140612
  Receipt Date: 20140612
  Transmission Date: 20141212
  Serious: Yes (Hospitalization)
  Sender: FDA-Public Use
  Company Number: BR-DSJP-DSU-2014-111224

PATIENT
  Sex: 0

DRUGS (4)
  1. OLMETEC HCT 20/12.5 [Suspect]
     Indication: BLOOD PRESSURE
     Dosage: 20/12.5 MG QD
     Route: 048
     Dates: start: 201405
  2. OLMETEC HCT 20/12.5 [Suspect]
     Indication: SWELLING
  3. AAS [Concomitant]
     Indication: ANTICOAGULANT THERAPY
     Dosage: UNK
     Route: 048
     Dates: start: 201401
  4. OMEPRAZOLE                         /00661202/ [Concomitant]
     Indication: PROPHYLAXIS
     Dosage: UNK
     Route: 048
     Dates: start: 201401

REACTIONS (1)
  - Cerebrovascular accident [Unknown]
